FAERS Safety Report 9772548 (Version 2)
Quarter: 2014Q1

REPORT INFORMATION
  Report Type: Spontaneous
  Country: US (occurrence: US)
  Receive Date: 20131219
  Receipt Date: 20140116
  Transmission Date: 20141002
  Serious: Yes (Hospitalization)
  Sender: FDA-Public Use
  Company Number: US-B.I. PHARMACEUTICALS,INC./RIDGEFIELD-2013-BI-42418BP

PATIENT
  Age: 73 Year
  Sex: Male
  Weight: 100.24 kg

DRUGS (8)
  1. PRADAXA [Suspect]
     Indication: ATRIAL FIBRILLATION
     Dosage: 300 MG
     Route: 048
     Dates: start: 20110914, end: 20110922
  2. ALDACTONE [Concomitant]
     Dosage: 25 MG
     Route: 048
  3. SOTALOL [Concomitant]
     Dosage: 160 MG
     Route: 048
  4. COREG [Concomitant]
     Dosage: 50 MG
     Route: 048
  5. LISINOPRIL [Concomitant]
     Dosage: 10 MG
     Route: 048
  6. PRAVASTATIN [Concomitant]
     Dosage: 80 MG
     Route: 048
  7. LASIX [Concomitant]
     Dosage: 40 MG
     Route: 048
  8. PLAQUENIL [Concomitant]
     Dosage: 400 MG
     Route: 048

REACTIONS (3)
  - Gastrointestinal haemorrhage [Unknown]
  - Gastritis [Unknown]
  - Anaemia [Unknown]
